FAERS Safety Report 19489143 (Version 1)
Quarter: 2021Q3

REPORT INFORMATION
  Report Type: Spontaneous
  Country: US (occurrence: US)
  Receive Date: 20210703
  Receipt Date: 20210703
  Transmission Date: 20211014
  Serious: Yes (Life-Threatening, Hospitalization, Other)
  Sender: FDA-Public Use
  Company Number: US-GRANULES-US-2021GRALIT00391

PATIENT
  Age: 1 Day
  Sex: Male

DRUGS (3)
  1. NITRIC OXIDE. [Interacting]
     Active Substance: NITRIC OXIDE
     Dosage: 40 PPM
     Route: 055
  2. NITRIC OXIDE. [Interacting]
     Active Substance: NITRIC OXIDE
     Indication: OXYGEN SATURATION
     Dosage: 20PPM
     Route: 055
  3. ACETAMINOPHEN. [Suspect]
     Active Substance: ACETAMINOPHEN
     Indication: PRODUCT USED FOR UNKNOWN INDICATION
     Route: 064

REACTIONS (4)
  - Pulmonary hypertension [Recovered/Resolved]
  - Neonatal respiratory failure [Recovered/Resolved]
  - Foetal exposure during pregnancy [Recovered/Resolved]
  - Ductus arteriosus premature closure [Recovered/Resolved]
